FAERS Safety Report 7063563-6 (Version None)
Quarter: 2010Q4

REPORT INFORMATION
  Report Type: 
  Country: None (occurrence: None)
  Receive Date: 20101026
  Receipt Date: 20100802
  Transmission Date: 20110411
  Serious: No
  Sender: FDA-Public Use
  Company Number: US-ABBOTT-10P-163-0655360-00

PATIENT
  Sex: Female
  Weight: 64.922 kg

DRUGS (3)
  1. LUPRON DEPOT [Suspect]
     Indication: ENDOMETRIOSIS
     Dates: start: 20100611
  2. LUPRON DEPOT [Suspect]
     Indication: ADENOMYOSIS
  3. AGESTYN [Concomitant]
     Indication: HORMONE REPLACEMENT THERAPY
     Dates: start: 20100101

REACTIONS (4)
  - BACK PAIN [None]
  - MENSTRUAL DISORDER [None]
  - MUSCLE SPASMS [None]
  - PAIN IN EXTREMITY [None]
